FAERS Safety Report 12998183 (Version 1)
Quarter: 2016Q4

REPORT INFORMATION
  Report Type: Spontaneous
  Country: US (occurrence: US)
  Receive Date: 20161205
  Receipt Date: 20161205
  Transmission Date: 20170207
  Serious: No
  Sender: FDA-Public Use
  Company Number: US-PFIZER INC-2016560629

PATIENT
  Age: 84 Year
  Sex: Female
  Weight: 67 kg

DRUGS (5)
  1. GABAPENTIN. [Suspect]
     Active Substance: GABAPENTIN
     Dosage: 100 MG, UNK
     Dates: start: 201601
  2. GABAPENTIN. [Suspect]
     Active Substance: GABAPENTIN
     Indication: NEUROPATHY PERIPHERAL
     Dosage: 300 MG, UNK
     Route: 048
     Dates: start: 2015
  3. PROPANOLOL /00030001/ [Concomitant]
     Active Substance: PROPRANOLOL HYDROCHLORIDE
     Indication: FAMILIAL TREMOR
     Dosage: 20 MG, 2X/DAY
     Route: 048
  4. CARDIZEM [Concomitant]
     Active Substance: DILTIAZEM HYDROCHLORIDE
     Indication: ATRIAL FIBRILLATION
     Dosage: 30 MG, 2X/DAY
     Route: 048
  5. NEXIUM 24HR [Concomitant]
     Active Substance: ESOMEPRAZOLE MAGNESIUM
     Indication: GASTROOESOPHAGEAL REFLUX DISEASE
     Dosage: 22 MG, 1X/DAY (EVERY NIGHT)
     Route: 048

REACTIONS (6)
  - Drug ineffective for unapproved indication [Unknown]
  - Activities of daily living impaired [Unknown]
  - Accident at home [Unknown]
  - Balance disorder [Unknown]
  - Disorientation [Unknown]
  - Drug intolerance [Unknown]
